FAERS Safety Report 18343861 (Version 1)
Quarter: 2020Q4

REPORT INFORMATION
  Report Type: Spontaneous
  Country: DE (occurrence: DE)
  Receive Date: 20201005
  Receipt Date: 20201005
  Transmission Date: 20210114
  Serious: Yes (Hospitalization, Other)
  Sender: FDA-Public Use
  Company Number: DE-ASTRAZENECA-2020SF24130

PATIENT
  Age: 77 Year
  Sex: Male
  Weight: 65.7 kg

DRUGS (8)
  1. TRAMADOL-RATIOPHARM [Concomitant]
  2. PEMBROLIZUMAB. [Suspect]
     Active Substance: PEMBROLIZUMAB
     Indication: NON-SMALL CELL LUNG CANCER
     Route: 065
     Dates: start: 20200619, end: 20200731
  3. PEMBROLIZUMAB. [Suspect]
     Active Substance: PEMBROLIZUMAB
     Indication: NON-SMALL CELL LUNG CANCER
     Route: 065
     Dates: start: 20200821
  4. METAMIZOL SODIUM [Concomitant]
     Active Substance: METAMIZOL SODIUM
  5. MCP-RATIOPHARM [Concomitant]
     Active Substance: METOCLOPRAMIDE HYDROCHLORIDE
  6. TAMSULOSIN RATIOPHARM [Concomitant]
  7. DURVALUMAB. [Suspect]
     Active Substance: DURVALUMAB
     Indication: NON-SMALL CELL LUNG CANCER
     Route: 042
     Dates: start: 20200603
  8. PALEXIA [Concomitant]
     Active Substance: TAPENTADOL HYDROCHLORIDE

REACTIONS (8)
  - Pathological fracture [Unknown]
  - Malignant neoplasm progression [Unknown]
  - Pleural effusion [Unknown]
  - Lung disorder [Unknown]
  - Herpes zoster [Recovered/Resolved]
  - Lymphadenopathy mediastinal [Unknown]
  - Osteolysis [Unknown]
  - Lymphatic disorder [Unknown]

NARRATIVE: CASE EVENT DATE: 202008
